FAERS Safety Report 18809625 (Version 1)
Quarter: 2021Q1

REPORT INFORMATION
  Report Type: Spontaneous
  Country: FI (occurrence: FI)
  Receive Date: 20210129
  Receipt Date: 20210129
  Transmission Date: 20210419
  Serious: Yes (Disabling)
  Sender: FDA-Public Use
  Company Number: FI-TEVA-2021-FI-1872955

PATIENT
  Sex: Female

DRUGS (1)
  1. DULOXETINE. [Suspect]
     Active Substance: DULOXETINE
     Indication: NEURALGIA
     Dates: start: 2020, end: 2020

REACTIONS (2)
  - Decreased activity [Unknown]
  - Pain [Unknown]

NARRATIVE: CASE EVENT DATE: 2020
